FAERS Safety Report 16676240 (Version 2)
Quarter: 2019Q3

REPORT INFORMATION
  Report Type: Spontaneous
  Country: JP (occurrence: JP)
  Receive Date: 20190807
  Receipt Date: 20190820
  Transmission Date: 20191004
  Serious: Yes (Other)
  Sender: FDA-Public Use
  Company Number: JP-BEH-2019105023

PATIENT
  Age: 86 Year
  Sex: Female
  Weight: 49 kg

DRUGS (6)
  1. OMEPRAZOLE [OMEPRAZOLE SODIUM] [Concomitant]
     Active Substance: OMEPRAZOLE SODIUM
     Route: 065
  2. SANGLOPOR [Suspect]
     Active Substance: HUMAN IMMUNOGLOBULIN G
     Dosage: 8 VIALS OF 2.5G, QD
     Route: 042
     Dates: start: 20190710, end: 20190712
  3. PREDONINE [Concomitant]
     Active Substance: PREDNISOLONE
     Route: 065
  4. BFLUID [Concomitant]
     Active Substance: AMINO ACIDS\DEXTROSE\ELECTROLYTES NOS\VITAMINS
     Route: 065
  5. SANGLOPOR [Suspect]
     Active Substance: HUMAN IMMUNOGLOBULIN G
     Indication: IMMUNE THROMBOCYTOPENIC PURPURA
     Dosage: 2 VIALS OF 2.5G, QD
     Route: 042
     Dates: start: 20190709, end: 20190709
  6. SANGLOPOR [Suspect]
     Active Substance: HUMAN IMMUNOGLOBULIN G
     Dosage: 4 VIALS OF 2.5G, QD
     Route: 042
     Dates: start: 20190709, end: 20190709

REACTIONS (1)
  - Antibody test positive [Recovered/Resolved]

NARRATIVE: CASE EVENT DATE: 20190712
